FAERS Safety Report 9657869 (Version 1)
Quarter: 2013Q4

REPORT INFORMATION
  Report Type: Spontaneous
  Country: GB (occurrence: None)
  Receive Date: 20131029
  Receipt Date: 20131029
  Transmission Date: 20140711
  Serious: Yes (Hospitalization, Other)
  Sender: FDA-Public Use
  Company Number: GB-DEXPHARM-20130787

PATIENT
  Age: 71 Year
  Sex: Female

DRUGS (3)
  1. OMEPRAZOLE [Suspect]
     Indication: DUODENAL ULCER
  2. IVIG [Concomitant]
  3. INDAPAMIDE [Concomitant]

REACTIONS (5)
  - Hypocalcaemia [None]
  - Hypokalaemia [None]
  - Hypomagnesaemia [None]
  - Guillain-Barre syndrome [None]
  - Areflexia [None]
